FAERS Safety Report 20058916 (Version 2)
Quarter: 2021Q4

REPORT INFORMATION
  Report Type: Spontaneous
  Country: SA (occurrence: None)
  Receive Date: 20211111
  Receipt Date: 20211115
  Transmission Date: 20220304
  Serious: Yes (Death)
  Sender: FDA-Public Use
  Company Number: 2021A803329

PATIENT

DRUGS (2)
  1. BRILINTA [Suspect]
     Active Substance: TICAGRELOR
     Indication: Acute coronary syndrome
     Route: 048
  2. CLOPIDOGREL [Suspect]
     Active Substance: CLOPIDOGREL BISULFATE
     Route: 065

REACTIONS (1)
  - Death [Fatal]
